FAERS Safety Report 17483907 (Version 2)
Quarter: 2020Q1

REPORT INFORMATION
  Report Type: Spontaneous
  Country: CO (occurrence: CO)
  Receive Date: 20200302
  Receipt Date: 20200303
  Transmission Date: 20200409
  Serious: No
  Sender: FDA-Public Use
  Company Number: CO-009507513-1910COL001815

PATIENT
  Age: 79 Year
  Sex: Male

DRUGS (1)
  1. LOSARTAN POTASSIUM. [Suspect]
     Active Substance: LOSARTAN POTASSIUM
     Dosage: 20 MILLIGRAM
     Route: 048

REACTIONS (1)
  - Tardive dyskinesia [Recovering/Resolving]
